FAERS Safety Report 4907153-7 (Version None)
Quarter: 2006Q1

REPORT INFORMATION
  Report Type: 
  Country: None (occurrence: None)
  Receive Date: 20060206
  Receipt Date: 20050808
  Transmission Date: 20060701
  Serious: Yes (Hospitalization)
  Sender: FDA-Public Use
  Company Number: JPKYO-S-20060001 - V001

PATIENT
  Age: 64 Year
  Sex: Female

DRUGS (3)
  1. NAVELBINE (VINORELBINE)SOLUTION FOR INJECTION [Suspect]
     Indication: BREAST CANCER METASTATIC
     Route: 042
     Dates: start: 20050713, end: 20050713
  2. ISOTONIC SOLUTIONS [Concomitant]
  3. DECADRON SRC [Concomitant]

REACTIONS (4)
  - HYPOTHYROIDISM [None]
  - INAPPROPRIATE ANTIDIURETIC HORMONE SECRETION [None]
  - INTESTINAL OBSTRUCTION [None]
  - STOMATITIS [None]
